FAERS Safety Report 13687332 (Version 3)
Quarter: 2017Q4

REPORT INFORMATION
  Report Type: Report from Study
  Country: US (occurrence: US)
  Receive Date: 20170623
  Receipt Date: 20171102
  Transmission Date: 20180320
  Serious: No
  Sender: FDA-Public Use
  Company Number: PHEH2017US019325

PATIENT
  Age: 63 Year
  Sex: Female

DRUGS (1)
  1. COSENTYX [Suspect]
     Active Substance: SECUKINUMAB
     Indication: PRODUCT USED FOR UNKNOWN INDICATION
     Dosage: 150 MG, QMO (Q4WEEKS)
     Route: 058
     Dates: start: 201705

REACTIONS (3)
  - Weight increased [Unknown]
  - Inappropriate schedule of drug administration [Unknown]
  - Rash [Unknown]

NARRATIVE: CASE EVENT DATE: 201705
